FAERS Safety Report 11706635 (Version 1)
Quarter: 2015Q4

REPORT INFORMATION
  Report Type: Spontaneous
  Country: US (occurrence: US)
  Receive Date: 20151106
  Receipt Date: 20151106
  Transmission Date: 20160304
  Serious: Yes (Hospitalization, Other)
  Sender: FDA-Public Use
  Company Number: US-FRI-1000080780

PATIENT
  Sex: Female

DRUGS (1)
  1. ARMOUR THYROID [Suspect]
     Active Substance: THYROID, PORCINE\THYROID, UNSPECIFIED
     Dosage: 90 MG

REACTIONS (5)
  - Multi-organ disorder [Recovering/Resolving]
  - Nausea [Recovering/Resolving]
  - Pancreatitis [Recovering/Resolving]
  - Inflammation [Recovering/Resolving]
  - Small intestine ulcer [Recovering/Resolving]

NARRATIVE: CASE EVENT DATE: 200907
